FAERS Safety Report 10758612 (Version 1)
Quarter: 2015Q1

REPORT INFORMATION
  Report Type: Spontaneous
  Country: US (occurrence: None)
  Receive Date: 20150123
  Receipt Date: 20150123
  Transmission Date: 20150721
  Serious: No
  Sender: FDA-Public Use
  Company Number: 2014TUS008889

PATIENT
  Age: 32 Year
  Sex: Female
  Weight: 77.6 kg

DRUGS (1)
  1. ENTYVIO [Suspect]
     Active Substance: VEDOLIZUMAB
     Indication: PRODUCT USED FOR UNKNOWN INDICATION
     Dosage: 300 MG, WEEK ZERO, INTRAVENOUS
     Route: 042
     Dates: start: 20140728, end: 20140728

REACTIONS (2)
  - Myalgia [None]
  - Rash [None]

NARRATIVE: CASE EVENT DATE: 20140730
